FAERS Safety Report 4699609-X (Version None)
Quarter: 2005Q2

REPORT INFORMATION
  Report Type: 
  Country: None (occurrence: None)
  Receive Date: 20050623
  Receipt Date: 20050613
  Transmission Date: 20051028
  Serious: Yes (Other)
  Sender: FDA-Public Use
  Company Number: 2005088848

PATIENT
  Age: 49 Year
  Sex: Male

DRUGS (2)
  1. CARDURA XL [Suspect]
     Indication: ILL-DEFINED DISORDER
     Dosage: (8 MG),ORAL
     Route: 048
  2. BETA BLOCKING AGENTS (BETA BLOCKING AGENTS) [Suspect]
     Indication: ILL-DEFINED DISORDER

REACTIONS (1)
  - ASTHMA [None]
